FAERS Safety Report 9371124 (Version 1)
Quarter: 2013Q2

REPORT INFORMATION
  Report Type: Spontaneous
  Country: US (occurrence: None)
  Receive Date: 20130626
  Receipt Date: 20130626
  Transmission Date: 20140414
  Serious: Yes (Disabling)
  Sender: FDA-Public Use
  Company Number: None

PATIENT
  Age: 72 Year
  Sex: Male
  Weight: 98.88 kg

DRUGS (1)
  1. METHYLPRED [Suspect]
     Indication: ARTHRITIS
     Dosage: 8 MG 1 DAILY
     Dates: start: 20120801, end: 20130620

REACTIONS (3)
  - Blindness [None]
  - Intraocular pressure increased [None]
  - Optic nerve disorder [None]
